FAERS Safety Report 7509255-8 (Version None)
Quarter: 2011Q2

REPORT INFORMATION
  Report Type: 
  Country: None (occurrence: None)
  Receive Date: 20110527
  Receipt Date: 20110525
  Transmission Date: 20111010
  Serious: Yes (Other)
  Sender: FDA-Public Use
  Company Number: FR-ABBOTT-11P-056-0725704-00

PATIENT
  Age: 31 Year
  Sex: Female
  Weight: 76 kg

DRUGS (4)
  1. HUMIRA [Suspect]
     Indication: CROHN'S DISEASE
     Route: 058
     Dates: start: 20110408, end: 20110408
  2. HUMIRA [Suspect]
     Indication: ANKYLOSING SPONDYLITIS
     Route: 058
     Dates: start: 20110325, end: 20110325
  3. PREDNISONE [Suspect]
     Indication: CROHN'S DISEASE
     Dosage: 70 MG AND THEN RAPID DECREASED DOSAGE
     Dates: start: 20110322
  4. HUMIRA [Suspect]
     Route: 058

REACTIONS (1)
  - ALOPECIA [None]
